FAERS Safety Report 10666782 (Version 1)
Quarter: 2014Q4

REPORT INFORMATION
  Report Type: Spontaneous
  Country: US (occurrence: None)
  Receive Date: 20141219
  Receipt Date: 20141219
  Transmission Date: 20150529
  Serious: Yes (Death)
  Sender: FDA-Public Use
  Company Number: None

PATIENT
  Age: 78 Year
  Sex: Male

DRUGS (11)
  1. OMEPRAZOLE. [Concomitant]
     Active Substance: OMEPRAZOLE
  2. MIRTAZAPINE. [Concomitant]
     Active Substance: MIRTAZAPINE
  3. ANAGRELIDE [Concomitant]
     Active Substance: ANAGRELIDE
  4. GABAPENTIN. [Concomitant]
     Active Substance: GABAPENTIN
  5. FINASTERIDE. [Concomitant]
     Active Substance: FINASTERIDE
  6. KCL [Concomitant]
     Active Substance: POTASSIUM CHLORIDE
  7. TAMSULOSIN [Concomitant]
     Active Substance: TAMSULOSIN
  8. PREDNISOLONE. [Concomitant]
     Active Substance: PREDNISOLONE
  9. REVLIMID [Suspect]
     Active Substance: LENALIDOMIDE
     Indication: MYELOPROLIFERATIVE DISORDER
     Route: 048
  10. METOLAZONE. [Concomitant]
     Active Substance: METOLAZONE
  11. BUMETANIDE. [Concomitant]
     Active Substance: BUMETANIDE

REACTIONS (9)
  - Abdominal sepsis [None]
  - Hyperkalaemia [None]
  - Metabolic acidosis [None]
  - Bradycardia [None]
  - Cardiac arrest [None]
  - Acute respiratory distress syndrome [None]
  - Dependence on respirator [None]
  - General physical health deterioration [None]
  - Shock [None]

NARRATIVE: CASE EVENT DATE: 20141023
